FAERS Safety Report 20131149 (Version 5)
Quarter: 2022Q4

REPORT INFORMATION
  Report Type: Report from Study
  Country: BR (occurrence: BR)
  Receive Date: 20211130
  Receipt Date: 20221109
  Transmission Date: 20230112
  Serious: Yes (Other)
  Sender: FDA-Public Use
  Company Number: BR-JNJFOC-20211156184

PATIENT
  Age: 51 Year
  Sex: Male
  Weight: 80 kg

DRUGS (3)
  1. INFLIXIMAB [Suspect]
     Active Substance: INFLIXIMAB
     Indication: Ankylosing spondylitis
     Route: 041
  2. REMICADE [Suspect]
     Active Substance: INFLIXIMAB
     Indication: Ankylosing spondylitis
     Route: 041
     Dates: start: 2005, end: 202104
  3. REMICADE [Suspect]
     Active Substance: INFLIXIMAB
     Dosage: REMICADE, VIAL 100MG, DOSE (100), FREQUENCY (8 WEEKS): ONCE IN 2 MONTHS
     Route: 041
     Dates: start: 2019, end: 202106

REACTIONS (4)
  - Tuberculosis [Recovering/Resolving]
  - COVID-19 pneumonia [Unknown]
  - Ankylosing spondylitis [Unknown]
  - Hypersensitivity [Unknown]

NARRATIVE: CASE EVENT DATE: 20180101
